FAERS Safety Report 8610843-6 (Version None)
Quarter: 2012Q3

REPORT INFORMATION
  Report Type: 
  Country: None (occurrence: None)
  Receive Date: 20120822
  Receipt Date: 20120813
  Transmission Date: 20120928
  Serious: Yes (Other)
  Sender: FDA-Public Use
  Company Number: US-JNJFOC-20120712946

PATIENT
  Sex: Female
  Weight: 61.24 kg

DRUGS (2)
  1. MULTI-VITAMINS [Concomitant]
     Route: 065
  2. MICRONOR [Suspect]
     Indication: CONTRACEPTION
     Route: 048
     Dates: start: 20120101, end: 20120627

REACTIONS (2)
  - MACULAR DEGENERATION [None]
  - VAGINAL HAEMORRHAGE [None]
